FAERS Safety Report 7309240-5 (Version None)
Quarter: 2011Q1

REPORT INFORMATION
  Report Type: 
  Country: None (occurrence: None)
  Receive Date: 20110211
  Receipt Date: 20110110
  Transmission Date: 20110831
  Serious: Yes (Hospitalization)
  Sender: FDA-Public Use
  Company Number: 2011SP001318

PATIENT
  Age: 13 Year
  Sex: Female
  Weight: 48 kg

DRUGS (5)
  1. DESALEX (DESLORATADINE /01398501/) [Suspect]
     Indication: NASAL CONGESTION
     Dosage: 5 MG;QD;PO
     Route: 048
     Dates: start: 20110105, end: 20110106
  2. DESALEX (DESLORATADINE /01398501/) [Suspect]
     Indication: COUGH
     Dosage: 5 MG;QD;PO
     Route: 048
     Dates: start: 20110105, end: 20110106
  3. DESALEX (DESLORATADINE /01398501/) [Suspect]
     Indication: PRODUCT USED FOR UNKNOWN INDICATION
     Dosage: 5 MG;QD;PO
     Route: 048
     Dates: start: 20110105, end: 20110106
  4. DESALEX (DESLORATADINE /01398501/) [Suspect]
     Indication: RHINITIS ALLERGIC
     Dosage: 5 MG;QD;PO
     Route: 048
     Dates: start: 20110105, end: 20110106
  5. PREDNISOLONE [Concomitant]

REACTIONS (5)
  - VOMITING [None]
  - HAEMATOCHEZIA [None]
  - SALMONELLOSIS [None]
  - GASTROINTESTINAL INFECTION [None]
  - DEHYDRATION [None]
